FAERS Safety Report 6723967-5 (Version None)
Quarter: 2010Q2

REPORT INFORMATION
  Report Type: 
  Country: None (occurrence: None)
  Receive Date: 20100513
  Receipt Date: 20100430
  Transmission Date: 20101027
  Serious: Yes (Other)
  Sender: FDA-Public Use
  Company Number: PHHY2010ES27819

PATIENT
  Age: 64 Year
  Sex: Female

DRUGS (3)
  1. ZOMETA [Suspect]
     Indication: MULTIPLE MYELOMA
     Dosage: UNK
     Dates: start: 20050101
  2. ZOMETA [Suspect]
     Dosage: UNK
     Dates: start: 20090101, end: 20091201
  3. CHEMOTHERAPEUTICS NOS [Concomitant]
     Dosage: UNK
     Dates: start: 20050101

REACTIONS (2)
  - AUTOLOGOUS BONE MARROW TRANSPLANTATION THERAPY [None]
  - OSTEONECROSIS OF JAW [None]
